FAERS Safety Report 7085997-6 (Version None)
Quarter: 2010Q4

REPORT INFORMATION
  Report Type: 
  Country: None (occurrence: None)
  Receive Date: 20101007
  Receipt Date: 20090827
  Transmission Date: 20110411
  Serious: Yes (Other)
  Sender: FDA-Public Use
  Company Number: 2211100-US-JNJFOC-20090900029

PATIENT
  Age: 57 Year
  Sex: Female
  Weight: 74.8435 kg

DRUGS (4)
  1. MONISTAT 1 COMBINATION PACK [Suspect]
     Indication: FUNGAL INFECTION
     Dosage: 1200 MG, 1 IN 1 DAY, VAGINAL
     Route: 067
     Dates: start: 20090814, end: 20090814
  2. MONISTAT 1 COMBINATION PACK [Suspect]
     Indication: FUNGAL INFECTION
     Dosage: 100MG TUBE 2% STRENGTH EXTERNAL CREAM
     Dates: start: 20090814, end: 20090814
  3. MULTIVITAMIN [Concomitant]
  4. ANTIHYPERTENSIVE (ANTIHYPERTENSIVES) [Concomitant]

REACTIONS (3)
  - VAGINAL HAEMORRHAGE [None]
  - VAGINAL MUCOSAL BLISTERING [None]
  - VULVOVAGINAL BURNING SENSATION [None]
